FAERS Safety Report 7319679-X (Version None)
Quarter: 2011Q1

REPORT INFORMATION
  Report Type: 
  Country: None (occurrence: None)
  Receive Date: 20110228
  Receipt Date: 20100721
  Transmission Date: 20110831
  Serious: No
  Sender: FDA-Public Use
  Company Number: A0871688A

PATIENT
  Age: 20 Month

DRUGS (1)
  1. LAMICTAL [Suspect]
     Indication: BIPOLAR DISORDER
     Route: 064

REACTIONS (3)
  - DRUG EXPOSURE DURING PREGNANCY [None]
  - MEDICAL DEVICE IMPLANTATION [None]
  - SPEECH DISORDER DEVELOPMENTAL [None]
